FAERS Safety Report 8697816 (Version 2)
Quarter: 2013Q4

REPORT INFORMATION
  Report Type: Spontaneous
  Country: US (occurrence: US)
  Receive Date: 20120801
  Receipt Date: 20131105
  Transmission Date: 20140711
  Serious: Yes (Life-Threatening, Hospitalization)
  Sender: FDA-Public Use
  Company Number: US-009507513-1207USA011100

PATIENT
  Sex: Male

DRUGS (9)
  1. ZOCOR [Suspect]
     Route: 048
  2. ABIRATERONE ACETATE [Suspect]
     Route: 048
  3. PREDNISONE [Suspect]
     Route: 048
  4. ZALEPLON [Concomitant]
  5. FLUTICASONE [Concomitant]
  6. SYSTANE ULTRA [Concomitant]
  7. RESTASIS [Concomitant]
  8. METOPROLOL [Concomitant]
  9. ASPIRIN [Concomitant]

REACTIONS (2)
  - Rhabdomyolysis [Unknown]
  - Dehydration [Unknown]
